FAERS Safety Report 17028265 (Version 2)
Quarter: 2019Q4

REPORT INFORMATION
  Report Type: Report from Study
  Country: US (occurrence: US)
  Receive Date: 20191113
  Receipt Date: 20191202
  Transmission Date: 20200122
  Serious: Yes (Hospitalization, Other)
  Sender: FDA-Public Use
  Company Number: US-ACTELION-A-NJ2019-197919

PATIENT
  Age: 20 Year
  Sex: Female

DRUGS (5)
  1. OPSUMIT [Suspect]
     Active Substance: MACITENTAN
     Indication: PULMONARY ARTERIAL HYPERTENSION
     Dosage: 10 MG, QD
     Route: 048
     Dates: start: 201906
  2. INTRAUTERINE CONTRACEPTIVE DEVICE [Suspect]
     Active Substance: COPPER
     Indication: PRODUCT USED FOR UNKNOWN INDICATION
     Dosage: UNK
     Route: 067
  3. REMODULIN [Concomitant]
     Active Substance: TREPROSTINIL
     Dosage: 47 UNK
     Route: 058
     Dates: start: 201907
  4. DIGOXIN. [Concomitant]
     Active Substance: DIGOXIN
     Dosage: 0.25 MG
     Dates: start: 201906
  5. TADALAFIL. [Concomitant]
     Active Substance: TADALAFIL
     Dosage: 20 MG, BID
     Dates: start: 201906

REACTIONS (6)
  - Vaginal haemorrhage [Recovered/Resolved]
  - Loss of consciousness [Recovered/Resolved]
  - Haemoglobin decreased [Recovered/Resolved]
  - Transplant evaluation [Not Recovered/Not Resolved]
  - Hospitalisation [Unknown]
  - Transfusion [Unknown]

NARRATIVE: CASE EVENT DATE: 201908
